FAERS Safety Report 8464626-0 (Version None)
Quarter: 2012Q2

REPORT INFORMATION
  Report Type: 
  Country: None (occurrence: None)
  Receive Date: 20120620
  Receipt Date: 20120620
  Transmission Date: 20120825
  Serious: No
  Sender: FDA-Public Use
  Company Number: None

PATIENT
  Age: 37 Year
  Sex: Female
  Weight: 54.4316 kg

DRUGS (2)
  1. BENADRYL [Concomitant]
  2. JOLESSA 0.15MG/0.03MG TEVA [Suspect]
     Indication: CONTRACEPTION
     Dosage: 1 DAILY PO
     Route: 048
     Dates: start: 20120609, end: 20120619

REACTIONS (2)
  - PRODUCT SUBSTITUTION ISSUE [None]
  - RASH [None]
